FAERS Safety Report 26083873 (Version 1)
Quarter: 2025Q4

REPORT INFORMATION
  Report Type: Report from Study
  Country: US (occurrence: US)
  Receive Date: 20251124
  Receipt Date: 20251124
  Transmission Date: 20260117
  Serious: Yes (Life-Threatening, Hospitalization, Other)
  Sender: ALEXION PHARMACEUTICALS
  Company Number: 2021A684593

PATIENT
  Age: 72 Year
  Sex: Female

DRUGS (3)
  1. BUDESONIDE [Suspect]
     Active Substance: BUDESONIDE
     Route: 065
  2. FASENRA [Suspect]
     Active Substance: BENRALIZUMAB
     Indication: Asthma
     Dosage: 30 MILLIGRAM, Q8W
     Dates: start: 201912
  3. FASENRA [Suspect]
     Active Substance: BENRALIZUMAB

REACTIONS (13)
  - Cardiac failure [Unknown]
  - Respiratory failure [Unknown]
  - Atrial fibrillation [Unknown]
  - Obstructive sleep apnoea syndrome [Unknown]
  - Type 2 diabetes mellitus [Unknown]
  - Pulmonary mass [Unknown]
  - Dyspnoea [Unknown]
  - Pulmonary oedema [Unknown]
  - Pneumonia [Unknown]
  - Oedema [Unknown]
  - Atelectasis [Unknown]
  - Escherichia urinary tract infection [Unknown]
  - Atypical pneumonia [Unknown]
